FAERS Safety Report 7265613-0 (Version None)
Quarter: 2011Q1

REPORT INFORMATION
  Report Type: 
  Country: None (occurrence: None)
  Receive Date: 20110131
  Receipt Date: 20101215
  Transmission Date: 20110831
  Serious: Yes (Hospitalization)
  Sender: FDA-Public Use
  Company Number: US-BAYER-201020668NA

PATIENT
  Sex: Female
  Weight: 99.773 kg

DRUGS (9)
  1. UNCODEABLE ^UNCLASSIFIABLE^ [Concomitant]
  2. YAZ [Suspect]
     Indication: OVARIAN CYST
     Dosage: UNK UNK, QD
     Route: 048
     Dates: start: 20080228, end: 20090201
  3. YAZ [Suspect]
     Indication: ENDOMETRIOSIS
  4. VICODIN [Concomitant]
     Dosage: 7.5 MG, UNK
     Dates: start: 20080601
  5. HYDROCHLOROTHIAZIDE [Concomitant]
     Dosage: 25 MG, UNK
     Dates: start: 20080601
  6. YASMIN [Suspect]
     Indication: PRODUCT USED FOR UNKNOWN INDICATION
  7. LEVAQUIN [Concomitant]
     Indication: CYSTITIS
     Dosage: UNK
     Dates: start: 20081001
  8. CODEINE [Concomitant]
  9. ADVIL LIQUI-GELS [Concomitant]
     Indication: ARTHRALGIA

REACTIONS (8)
  - VOMITING [None]
  - CHOLECYSTITIS ACUTE [None]
  - ABDOMINAL PAIN UPPER [None]
  - NAUSEA [None]
  - JAUNDICE [None]
  - PAIN [None]
  - BILE DUCT STONE [None]
  - CHOLELITHIASIS [None]
